FAERS Safety Report 9022000 (Version 1)
Quarter: 2013Q1

REPORT INFORMATION
  Report Type: Report from Study
  Country: NL (occurrence: NL)
  Receive Date: 20130118
  Receipt Date: 20130118
  Transmission Date: 20140127
  Serious: Yes (Hospitalization, Other)
  Sender: FDA-Public Use
  Company Number: NL-ROCHE-1177915

PATIENT
  Age: 69 None
  Sex: Male
  Weight: 78 kg

DRUGS (17)
  1. RITUXIMAB [Suspect]
     Indication: MALIGNANT LYMPHOID NEOPLASM
     Dosage: LAST DOSE PRIOR TO SAE: 17/DEC/2012
     Route: 042
     Dates: start: 20121203
  2. METHOTREXATE [Suspect]
     Indication: MALIGNANT LYMPHOID NEOPLASM
     Dosage: LAST DOSE PRIOR TO SAE: 10/DEC/2012
     Route: 042
     Dates: start: 20121204
  3. CARMUSTINE [Suspect]
     Indication: MALIGNANT LYMPHOID NEOPLASM
     Dosage: LAST DOSE PRIOR TO SAE: 07/DEC/2012
     Route: 042
     Dates: start: 20121207
  4. PREDNISOLONE [Suspect]
     Indication: MALIGNANT LYMPHOID NEOPLASM
     Dosage: LAST DOSE PRIOR TO SAE: 08/DEC/2012
     Route: 048
     Dates: start: 20121204
  5. TENIPOSIDE [Suspect]
     Indication: MALIGNANT LYMPHOID NEOPLASM
     Dosage: LAST DOSE PRIOR TO SAE:06/DEC/2012
     Route: 042
     Dates: start: 20121205
  6. ZELITREX [Concomitant]
     Route: 048
     Dates: start: 20121203, end: 20121220
  7. ZESTORETIC [Concomitant]
     Indication: HYPERTENSION
     Dosage: 20/12.5 MG
     Route: 048
     Dates: end: 20121220
  8. AMLODIPINE [Concomitant]
     Indication: HYPERTENSION
     Route: 048
     Dates: end: 20121220
  9. CIPROFLOXACIN [Concomitant]
     Indication: ANTIBIOTIC THERAPY
     Route: 048
     Dates: start: 20121203, end: 20121220
  10. DEXAMETHASONE [Concomitant]
     Route: 048
     Dates: end: 20121220
  11. FLUCONAZOLE [Concomitant]
     Route: 048
     Dates: start: 20121203, end: 20121220
  12. FUROSEMIDE [Concomitant]
     Route: 048
     Dates: end: 20121220
  13. METOPROLOL AL [Concomitant]
     Indication: HYPERTENSION
     Route: 048
     Dates: end: 20121220
  14. MIRTAZAPINE [Concomitant]
     Indication: DEPRESSIVE SYMPTOM
     Route: 048
     Dates: end: 20121220
  15. MOVICOLON [Concomitant]
     Route: 048
     Dates: end: 20121220
  16. OXAZEPAM [Concomitant]
     Indication: ANXIETY
     Route: 048
     Dates: end: 20121220
  17. OXYNORM [Concomitant]
     Route: 048

REACTIONS (2)
  - Chest pain [Recovered/Resolved with Sequelae]
  - Troponin increased [Recovered/Resolved with Sequelae]
